FAERS Safety Report 4307004-8 (Version None)
Quarter: 2004Q1

REPORT INFORMATION
  Report Type: 
  Country: None (occurrence: None)
  Receive Date: 20040225
  Receipt Date: 20040218
  Transmission Date: 20041129
  Serious: Yes (Hospitalization)
  Sender: FDA-Public Use
  Company Number: 200402188

PATIENT
  Age: 12 Month
  Sex: Male
  Weight: 9.2 kg

DRUGS (12)
  1. ACETAMINOPHEN [Suspect]
     Indication: RESPIRATORY DISORDER
     Dosage: 120-125 MG/DOSE PO
     Route: 048
     Dates: start: 20030801
  2. TYLENOL SUPPOSITORY (PARACETAMOL) [Suspect]
     Dosage: 250 MG X 3 PRN RECTAL
     Route: 054
     Dates: start: 20030801
  3. CEFACLOR [Concomitant]
  4. KIDDI PHARMATON (MULTIVITAMIN DIETARY SUPPLEMENT) [Concomitant]
  5. CHLORPHENIRAMINE MALEATE [Concomitant]
  6. KAOLIN/PECTIN [Concomitant]
  7. DIMENHYDRINATE [Concomitant]
  8. DOMPERIDONE [Concomitant]
  9. KAOLIN/PECTIN/DIMETHICONE/DICYCLOMINE [Concomitant]
  10. CEFTIBUTEN [Concomitant]
  11. SACCHAROMYCES GOULARDI [Concomitant]
  12. PROMETHAZINE [Concomitant]

REACTIONS (39)
  - ABDOMINAL DISTENSION [None]
  - ABNORMAL FAECES [None]
  - ACTIVATED PARTIAL THROMBOPLASTIN TIME PROLONGED [None]
  - ALANINE AMINOTRANSFERASE INCREASED [None]
  - AMMONIA INCREASED [None]
  - ASPARTATE AMINOTRANSFERASE INCREASED [None]
  - BLOOD AMYLASE INCREASED [None]
  - BLOOD CREATINE PHOSPHOKINASE INCREASED [None]
  - BLOOD LACTIC ACID INCREASED [None]
  - BLOOD PYRUVIC ACID INCREASED [None]
  - BOWEL SOUNDS ABNORMAL [None]
  - DECREASED ACTIVITY [None]
  - DEHYDRATION [None]
  - DIARRHOEA [None]
  - DISSEMINATED INTRAVASCULAR COAGULATION [None]
  - EJECTION FRACTION DECREASED [None]
  - FIBRIN D DIMER INCREASED [None]
  - GASTROENTERITIS [None]
  - GLOMERULAR FILTRATION RATE DECREASED [None]
  - HAEMATEMESIS [None]
  - HAEMATURIA [None]
  - HEART RATE INCREASED [None]
  - HEPATOTOXICITY [None]
  - HYPOGLYCAEMIA [None]
  - HYPOTENSION [None]
  - ILEUS PARALYTIC [None]
  - METABOLIC ACIDOSIS [None]
  - OVERDOSE [None]
  - PROTEINURIA [None]
  - PROTHROMBIN TIME PROLONGED [None]
  - PSEUDOMONAS INFECTION [None]
  - RENAL TUBULAR DISORDER [None]
  - RHABDOMYOLYSIS [None]
  - SEPSIS [None]
  - SHOCK [None]
  - THROMBOCYTOPENIA [None]
  - URINARY TRACT INFECTION [None]
  - VENTRICULAR DYSFUNCTION [None]
  - VOMITING [None]
